FAERS Safety Report 8100579-2 (Version None)
Quarter: 2012Q1

REPORT INFORMATION
  Report Type: 
  Country: None (occurrence: None)
  Receive Date: 20120129
  Receipt Date: 20111117
  Transmission Date: 20120608
  Serious: No
  Sender: FDA-Public Use
  Company Number: US-ABBOTT-11P-163-0875602-00

PATIENT
  Sex: Female
  Weight: 63.56 kg

DRUGS (3)
  1. DEXILANT [Concomitant]
     Indication: GASTROOESOPHAGEAL REFLUX DISEASE
  2. VITAMIN TAB [Concomitant]
     Indication: PRODUCT USED FOR UNKNOWN INDICATION
  3. HUMIRA [Suspect]
     Indication: RHEUMATOID ARTHRITIS
     Dates: start: 20110101, end: 20110801

REACTIONS (5)
  - DIARRHOEA [None]
  - ASTHENIA [None]
  - ABDOMINAL PAIN [None]
  - MUSCLE SPASMS [None]
  - DIVERTICULITIS [None]
